FAERS Safety Report 18211210 (Version 2)
Quarter: 2020Q4

REPORT INFORMATION
  Report Type: Report from Study
  Country: None (occurrence: US)
  Receive Date: 20200831
  Receipt Date: 20201125
  Transmission Date: 20210113
  Serious: Yes (Hospitalization, Congenital Anomaly, Other)
  Sender: FDA-Public Use
  Company Number: US-ABBVIE-20K-163-3384969-00

PATIENT
  Sex: Male
  Weight: 108.96 kg

DRUGS (3)
  1. HUMIRA [Suspect]
     Active Substance: ADALIMUMAB
     Indication: ANKYLOSING SPONDYLITIS
     Route: 058
     Dates: start: 2015, end: 201911
  2. HUMIRA [Suspect]
     Active Substance: ADALIMUMAB
     Route: 058
     Dates: start: 201912
  3. HUMIRA [Suspect]
     Active Substance: ADALIMUMAB
     Route: 058
     Dates: start: 201911, end: 201911

REACTIONS (10)
  - Tendon injury [Recovered/Resolved]
  - Joint range of motion decreased [Not Recovered/Not Resolved]
  - Postoperative wound complication [Recovered/Resolved]
  - Wound complication [Recovered/Resolved]
  - Pain in extremity [Recovered/Resolved]
  - Purulence [Recovered/Resolved]
  - Skin laceration [Recovered/Resolved]
  - Foot operation [Unknown]
  - Wound infection staphylococcal [Recovered/Resolved]
  - Therapeutic product effect incomplete [Recovered/Resolved]

NARRATIVE: CASE EVENT DATE: 2018
